FAERS Safety Report 14371272 (Version 1)
Quarter: 2018Q1

REPORT INFORMATION
  Report Type: Spontaneous
  Country: US (occurrence: US)
  Receive Date: 20180110
  Receipt Date: 20180110
  Transmission Date: 20180509
  Serious: No
  Sender: FDA-Public Use
  Company Number: US-TEVA-2017-US-842354

PATIENT
  Sex: Female

DRUGS (1)
  1. COPAXONE [Suspect]
     Active Substance: GLATIRAMER ACETATE
     Indication: MULTIPLE SCLEROSIS
     Dosage: STARTED COPAXONE FROM 18 MONTHS.
     Route: 058
     Dates: start: 2016

REACTIONS (2)
  - Injection site erythema [Not Recovered/Not Resolved]
  - Drug ineffective [Unknown]
